FAERS Safety Report 19556601 (Version 1)
Quarter: 2021Q3

REPORT INFORMATION
  Report Type: Spontaneous
  Country: US (occurrence: US)
  Receive Date: 20210715
  Receipt Date: 20210715
  Transmission Date: 20211014
  Serious: No
  Sender: FDA-Public Use
  Company Number: US-GLAXOSMITHKLINE-US2021151583

PATIENT
  Age: 69 Year
  Sex: Male

DRUGS (1)
  1. TRELEGY ELLIPTA [Suspect]
     Active Substance: FLUTICASONE FUROATE\UMECLIDINIUM BROMIDE\VILANTEROL TRIFENATATE
     Indication: CHRONIC OBSTRUCTIVE PULMONARY DISEASE
     Dosage: 2 PUFF(S), CONSECUTIVELY AT 10:30AM, 200 ?G
     Route: 055
     Dates: start: 20210712

REACTIONS (6)
  - Dyspnoea [Recovering/Resolving]
  - Overdose [Unknown]
  - Nervousness [Recovering/Resolving]
  - Anxiety [Recovering/Resolving]
  - Respiratory tract congestion [Recovering/Resolving]
  - Dizziness [Recovering/Resolving]

NARRATIVE: CASE EVENT DATE: 20210712
